FAERS Safety Report 22277412 (Version 1)
Quarter: 2023Q2

REPORT INFORMATION
  Report Type: Spontaneous
  Country: CA (occurrence: CA)
  Receive Date: 20230503
  Receipt Date: 20230503
  Transmission Date: 20230722
  Serious: Yes (Other)
  Sender: FDA-Public Use
  Company Number: CA-BAXTER-2023BAX019848

PATIENT
  Age: 33 Year
  Sex: Female

DRUGS (25)
  1. IFOSFAMIDE [Suspect]
     Active Substance: IFOSFAMIDE
     Indication: Epstein-Barr virus infection
     Dosage: DOSAGE FORM: POWDER FOR SOLUTION INTRAVENOUS
     Route: 042
  2. IFOSFAMIDE [Suspect]
     Active Substance: IFOSFAMIDE
     Indication: Chemotherapy
     Dosage: DOSAGE FORM: POWDER FOR SOLUTION FOR INFUSION
     Route: 065
  3. IFOSFAMIDE [Suspect]
     Active Substance: IFOSFAMIDE
     Indication: Angiocentric lymphoma
     Dosage: DOSAGE FORM: POWDER FOR SOLUTION FOR INFUSION
     Route: 065
  4. MESNA [Suspect]
     Active Substance: MESNA
     Indication: Epstein-Barr virus infection
     Dosage: DOSAGE FORM: SOLUTION INTRAVENOUS, 1 EVERY 1 DAYS
     Route: 042
  5. MESNA [Suspect]
     Active Substance: MESNA
     Indication: Angiocentric lymphoma
     Dosage: DOSAGE FORM: SOLUTION FOR INFUSION
     Route: 065
  6. DEXAMETHASONE [Suspect]
     Active Substance: DEXAMETHASONE
     Indication: Epstein-Barr virus infection
     Dosage: 40.0 MILLIGRAM, EVERY 1 DAYS (DOSAGE FORM: NOT SPECIFIED)
     Route: 042
  7. DEXAMETHASONE [Suspect]
     Active Substance: DEXAMETHASONE
     Indication: Chemotherapy
     Dosage: UNK
     Route: 065
  8. DEXAMETHASONE [Suspect]
     Active Substance: DEXAMETHASONE
     Indication: Angiocentric lymphoma
     Dosage: UNK
     Route: 065
  9. ETOPOSIDE [Suspect]
     Active Substance: ETOPOSIDE
     Indication: Epstein-Barr virus infection
     Dosage: UNK
     Route: 065
  10. ETOPOSIDE [Suspect]
     Active Substance: ETOPOSIDE
     Indication: Chemotherapy
     Dosage: (DOSAGE FORM: NOT SPECIFIED)
     Route: 042
  11. ETOPOSIDE [Suspect]
     Active Substance: ETOPOSIDE
     Indication: Angiocentric lymphoma
     Dosage: UNK
     Route: 065
  12. GRANULOCYTE COLONY-STIMULATING FACTOR NOS [Suspect]
     Active Substance: GRANULOCYTE COLONY-STIMULATING FACTOR NOS
     Indication: Epstein-Barr virus infection
     Dosage: UNK
     Route: 065
  13. GRANULOCYTE COLONY-STIMULATING FACTOR NOS [Suspect]
     Active Substance: GRANULOCYTE COLONY-STIMULATING FACTOR NOS
     Indication: Angiocentric lymphoma
     Dosage: UNK
     Route: 048
  14. ASPARAGINASE [Suspect]
     Active Substance: ASPARAGINASE
     Indication: Epstein-Barr virus infection
     Dosage: DOSAGE FORM: POWDER FOR SOLUTION FOR INJECTION
     Route: 065
  15. ASPARAGINASE [Suspect]
     Active Substance: ASPARAGINASE
     Indication: Chemotherapy
     Dosage: DOSAGE FORM: POWDER FOR SOLUTION INTRAMUSCULAR
     Route: 030
  16. ASPARAGINASE [Suspect]
     Active Substance: ASPARAGINASE
     Indication: Angiocentric lymphoma
     Dosage: DOSAGE FORM: POWDER FOR SOLUTION FOR INJECTION
     Route: 065
  17. LEUCOVORIN [Suspect]
     Active Substance: LEUCOVORIN
     Indication: Epstein-Barr virus infection
     Dosage: (DOSAGE FORM: INJECTION)
     Route: 065
  18. LEUCOVORIN [Suspect]
     Active Substance: LEUCOVORIN
     Indication: Chemotherapy
     Dosage: 15.0 MILLIGRAM, 4 EVERY 1 DAYS (DOSAGE FORM: NOT SPECIFIED)
     Route: 042
  19. LEUCOVORIN [Suspect]
     Active Substance: LEUCOVORIN
     Indication: Angiocentric lymphoma
     Dosage: (DOSAGE FORM: INJECTION)
     Route: 065
  20. METHOTREXATE SODIUM [Suspect]
     Active Substance: METHOTREXATE SODIUM
     Indication: Epstein-Barr virus infection
     Dosage: (DOSAGE FORM: TABLET)
     Route: 048
  21. METHOTREXATE SODIUM [Suspect]
     Active Substance: METHOTREXATE SODIUM
     Indication: Chemotherapy
     Dosage: (DOSAGE FORM: TABLET)
     Route: 065
  22. METHOTREXATE SODIUM [Suspect]
     Active Substance: METHOTREXATE SODIUM
     Indication: Angiocentric lymphoma
     Dosage: (DOSAGE FORM: TABLET)
     Route: 065
  23. BRENTUXIMAB VEDOTIN [Concomitant]
     Active Substance: BRENTUXIMAB VEDOTIN
     Indication: Epstein-Barr virus infection
     Dosage: 1.8 MG/KG
     Route: 048
  24. BRENTUXIMAB VEDOTIN [Concomitant]
     Active Substance: BRENTUXIMAB VEDOTIN
     Indication: Chemotherapy
  25. BRENTUXIMAB VEDOTIN [Concomitant]
     Active Substance: BRENTUXIMAB VEDOTIN
     Indication: Angiocentric lymphoma

REACTIONS (2)
  - Neutropenia [Unknown]
  - Thrombocytopenia [Unknown]
